FAERS Safety Report 21415642 (Version 1)
Quarter: 2022Q4

REPORT INFORMATION
  Report Type: Spontaneous
  Country: US (occurrence: None)
  Receive Date: 20221005
  Receipt Date: 20221005
  Transmission Date: 20230113
  Serious: Yes (Hospitalization)
  Sender: FDA-Public Use
  Company Number: None

PATIENT
  Age: 59 Year
  Sex: Female

DRUGS (1)
  1. TARGRETIN [Suspect]
     Active Substance: BEXAROTENE
     Dosage: FREQUENCY : DAILY;?
     Route: 048

REACTIONS (3)
  - Pneumonia [None]
  - Oxygen saturation decreased [None]
  - Blood cholesterol increased [None]

NARRATIVE: CASE EVENT DATE: 20220906
